FAERS Safety Report 11143534 (Version 8)
Quarter: 2016Q1

REPORT INFORMATION
  Report Type: Report from Study
  Country: CA (occurrence: CA)
  Receive Date: 20150528
  Receipt Date: 20160324
  Transmission Date: 20160525
  Serious: Yes (Hospitalization, Other)
  Sender: FDA-Public Use
  Company Number: CA-BRISTOL-MYERS SQUIBB COMPANY-BMS-2015-032177

PATIENT
  Age: 69 Year
  Sex: Male
  Weight: 107 kg

DRUGS (4)
  1. BETAMETHASONE. [Concomitant]
     Active Substance: BETAMETHASONE
     Indication: PRODUCT USED FOR UNKNOWN INDICATION
     Route: 065
  2. TOPICAL                            /00337102/ [Concomitant]
     Indication: PRODUCT USED FOR UNKNOWN INDICATION
     Route: 065
  3. COVERSYL                           /00790702/ [Concomitant]
     Active Substance: PERINDOPRIL
     Indication: PRODUCT USED FOR UNKNOWN INDICATION
     Route: 065
  4. NIVOLUMAB [Suspect]
     Active Substance: NIVOLUMAB
     Indication: METASTATIC MALIGNANT MELANOMA
     Dosage: 60 ML, UNK
     Route: 042
     Dates: start: 20140304, end: 20150515

REACTIONS (2)
  - Blood creatine phosphokinase increased [Recovered/Resolved]
  - Polymyositis [Not Recovered/Not Resolved]

NARRATIVE: CASE EVENT DATE: 20150512
